FAERS Safety Report 14212777 (Version 3)
Quarter: 2020Q4

REPORT INFORMATION
  Report Type: Spontaneous
  Country: DE (occurrence: DE)
  Receive Date: 20171122
  Receipt Date: 20201103
  Transmission Date: 20210113
  Serious: Yes (Other)
  Sender: FDA-Public Use
  Company Number: PHHY2017DE155053

PATIENT
  Age: 54 Year
  Sex: Male

DRUGS (18)
  1. METHOTREXATE. [Suspect]
     Active Substance: METHOTREXATE
     Dosage: 12 MG ON DAY 3
     Route: 065
  2. CYTARABINE. [Suspect]
     Active Substance: CYTARABINE
     Indication: ANGIOCENTRIC LYMPHOMA
     Dosage: 3 G/M2 (ON DAY 1 AND 2)
     Route: 065
  3. DEXAMETHASONE. [Suspect]
     Active Substance: DEXAMETHASONE
     Indication: ANGIOCENTRIC LYMPHOMA
     Dosage: 4 MG ON DAY 3
     Route: 065
  4. RITUXIMAB. [Suspect]
     Active Substance: RITUXIMAB
     Indication: ANGIOCENTRIC LYMPHOMA
     Dosage: 375 MG/M2, TWO CYCLES ON DAY 1 (INTENSIFICATION REGIMEN)
     Route: 065
  5. CARMUSTINE. [Concomitant]
     Active Substance: CARMUSTINE
     Indication: ANGIOCENTRIC LYMPHOMA
     Dosage: 400 MG/M2 (DAY -5)
     Route: 065
  6. CYTARABINE. [Suspect]
     Active Substance: CYTARABINE
     Dosage: 40 MG
     Route: 037
  7. THIOTEPA. [Suspect]
     Active Substance: THIOTEPA
     Indication: ANGIOCENTRIC LYMPHOMA
     Dosage: UNK
     Route: 065
  8. METHOTREXATE. [Suspect]
     Active Substance: METHOTREXATE
     Indication: ANGIOCENTRIC LYMPHOMA
     Dosage: 12 MG ON DAY 1
     Route: 037
  9. METHOTREXATE. [Suspect]
     Active Substance: METHOTREXATE
     Dosage: 4 G/M2 (HIGH DOSE)
     Route: 042
  10. METHOTREXATE. [Suspect]
     Active Substance: METHOTREXATE
     Dosage: 50 PERCENT DOSE REDUCTION AFTER THE FIRST CYCLE
     Route: 042
  11. VINCRISTINE SULFATE. [Suspect]
     Active Substance: VINCRISTINE SULFATE
     Indication: ANGIOCENTRIC LYMPHOMA
     Route: 065
  12. THIOTEPA. [Suspect]
     Active Substance: THIOTEPA
     Dosage: 40 MG/M2, ON DAY 2
     Route: 065
  13. RITUXIMAB. [Suspect]
     Active Substance: RITUXIMAB
     Dosage: FOUR ALTERNATING CYCLES OF R-CHOP-21
     Route: 065
  14. ETOPOSIDE. [Concomitant]
     Active Substance: ETOPOSIDE
     Indication: ANGIOCENTRIC LYMPHOMA
     Dosage: 150 MG/M2, DAY -5 TO -3)
     Route: 065
  15. THIOTEPA. [Suspect]
     Active Substance: THIOTEPA
     Dosage: 2 X 5 MG/KG (DAY -4 AND -3)
     Route: 065
  16. CYCLOPHOSPHAMIDE. [Suspect]
     Active Substance: CYCLOPHOSPHAMIDE
     Indication: ANGIOCENTRIC LYMPHOMA
     Dosage: UNK
     Route: 065
  17. DOXORUBICIN [Suspect]
     Active Substance: DOXORUBICIN
     Indication: ANGIOCENTRIC LYMPHOMA
     Dosage: FOUR ALTERNATING CYCLES
     Route: 065
  18. PREDNISONE. [Suspect]
     Active Substance: PREDNISONE
     Indication: ANGIOCENTRIC LYMPHOMA
     Dosage: FOUR ALTERNATING CYCLES
     Route: 065

REACTIONS (4)
  - Febrile neutropenia [Unknown]
  - Product use in unapproved indication [Unknown]
  - Acute kidney injury [Recovered/Resolved]
  - Off label use [Unknown]
